FAERS Safety Report 9711457 (Version 1)
Quarter: 2013Q4

REPORT INFORMATION
  Report Type: Spontaneous
  Country: US (occurrence: None)
  Receive Date: 20131125
  Receipt Date: 20131125
  Transmission Date: 20140711
  Serious: Yes (Hospitalization)
  Sender: FDA-Public Use
  Company Number: None

PATIENT
  Age: 69 Year
  Sex: Female
  Weight: 79.38 kg

DRUGS (2)
  1. LEVOFLOXACIN [Suspect]
     Indication: ARTHROPOD STING
     Dosage: 1 PILL ONCE DAILY TAKEN BY MOUTH
     Route: 048
     Dates: start: 20131001, end: 20131001
  2. SMZ/TMP DS [Suspect]
     Indication: ARTHROPOD STING
     Dosage: 1  TWICE DAILY TAKEN BY MOUTH
     Route: 048
     Dates: start: 20130930, end: 20130930

REACTIONS (4)
  - Nervous system disorder [None]
  - Hypoaesthesia [None]
  - Diarrhoea [None]
  - Vomiting [None]
